FAERS Safety Report 4324952-3 (Version None)
Quarter: 2004Q1

REPORT INFORMATION
  Report Type: 
  Country: None (occurrence: None)
  Receive Date: 20040325
  Receipt Date: 20040325
  Transmission Date: 20041129
  Serious: Yes (Life-Threatening, Hospitalization, Disabling, Other)
  Sender: FDA-Public Use
  Company Number: None

PATIENT
  Age: 55 Year
  Sex: Female
  Weight: 90.7194 kg

DRUGS (1)
  1. SINGULAIR [Suspect]
     Dosage: 10 MG /A DAY FOR 3 MONTHS

REACTIONS (1)
  - PERONEAL NERVE PALSY [None]
